FAERS Safety Report 4279478-2 (Version None)
Quarter: 2004Q1

REPORT INFORMATION
  Report Type: 
  Country: None (occurrence: None)
  Receive Date: 20040127
  Receipt Date: 20040115
  Transmission Date: 20041129
  Serious: Yes (Hospitalization)
  Sender: FDA-Public Use
  Company Number: ZA-GLAXOSMITHKLINE-B0320031A

PATIENT
  Age: 51 Year
  Sex: Male
  Weight: 38 kg

DRUGS (5)
  1. COMBIVIR [Suspect]
     Indication: SYSTEMIC ANTIVIRAL TREATMENT
     Dosage: 150MG TWICE PER DAY
     Route: 048
     Dates: start: 20031218, end: 20040114
  2. STOCRIN [Suspect]
     Indication: SYSTEMIC ANTIVIRAL TREATMENT
     Dosage: 600MG PER DAY
     Route: 048
     Dates: start: 20031218, end: 20040114
  3. RIFAFOUR [Suspect]
     Indication: TUBERCULOSIS
     Dosage: 4TAB PER DAY
     Route: 048
     Dates: start: 20031119, end: 20040114
  4. PURBAC [Concomitant]
     Indication: PROPHYLAXIS
     Route: 048
     Dates: start: 20031107, end: 20040114
  5. PYRIDOXINE [Concomitant]
     Indication: TUBERCULOSIS
     Dosage: 25MG PER DAY
     Route: 048
     Dates: start: 20031119, end: 20040114

REACTIONS (4)
  - ANAEMIA [None]
  - HEPATOTOXICITY [None]
  - HYPOPROTEINAEMIA [None]
  - JAUNDICE [None]
